FAERS Safety Report 13950275 (Version 4)
Quarter: 2017Q4

REPORT INFORMATION
  Report Type: Spontaneous
  Country: US (occurrence: US)
  Receive Date: 20170908
  Receipt Date: 20171114
  Transmission Date: 20180320
  Serious: No
  Sender: FDA-Public Use
  Company Number: PHHY2017US132636

PATIENT
  Age: 60 Year
  Sex: Female
  Weight: 67.57 kg

DRUGS (7)
  1. BSS [Suspect]
     Active Substance: CALCIUM CHLORIDE\MAGNESIUM CHLORIDE\POTASSIUM CHLORIDE\SODIUM ACETATE\SODIUM CHLORIDE\SODIUM CITRATE
     Indication: EYE IRRIGATION
     Dosage: UNK
     Route: 047
     Dates: start: 20170823, end: 20170823
  2. PROLENSA [Suspect]
     Active Substance: BROMFENAC SODIUM
     Indication: POSTOPERATIVE CARE
     Route: 047
  3. LOTEMAX [Suspect]
     Active Substance: LOTEPREDNOL ETABONATE
     Indication: POSTOPERATIVE CARE
     Route: 047
  4. BESIVANCE [Suspect]
     Active Substance: BESIFLOXACIN
     Indication: POSTOPERATIVE CARE
     Dosage: UNK UNK, TID
     Route: 047
  5. BESIVANCE [Suspect]
     Active Substance: BESIFLOXACIN
     Indication: PREOPERATIVE CARE
  6. MOXIFLOXACIN. [Suspect]
     Active Substance: MOXIFLOXACIN
     Indication: PREOPERATIVE CARE
     Route: 047
  7. BETADINE [Suspect]
     Active Substance: POVIDONE-IODINE
     Indication: INTRAOPERATIVE CARE
     Route: 047

REACTIONS (3)
  - Hypopyon [Not Recovered/Not Resolved]
  - Vitreal cells [Not Recovered/Not Resolved]
  - Non-infectious endophthalmitis [Not Recovered/Not Resolved]

NARRATIVE: CASE EVENT DATE: 20170829
